FAERS Safety Report 6628367-4 (Version None)
Quarter: 2010Q1

REPORT INFORMATION
  Report Type: 
  Country: None (occurrence: None)
  Receive Date: 20100311
  Receipt Date: 20100308
  Transmission Date: 20100710
  Serious: Yes (Death, Hospitalization, Other)
  Sender: FDA-Public Use
  Company Number: JP-ELI_LILLY_AND_COMPANY-JP201002004392

PATIENT
  Sex: Male
  Weight: 54 kg

DRUGS (25)
  1. GEMCITABINE HCL [Suspect]
     Indication: PANCREATIC CARCINOMA NON-RESECTABLE
     Dosage: 1495 MG, UNKNOWN
     Route: 042
     Dates: start: 20091217, end: 20100107
  2. BLINDED THERAPY [Suspect]
     Indication: PANCREATIC CARCINOMA NON-RESECTABLE
     Dosage: 1 ML, UNKNOWN
     Route: 058
     Dates: start: 20091217, end: 20100107
  3. OPSO [Concomitant]
     Indication: ABDOMINAL PAIN UPPER
     Dosage: 5 MG, AS NEEDED
     Route: 048
     Dates: start: 20100126, end: 20100202
  4. OPSO [Concomitant]
     Dosage: 5 MG, AS NEEDED
     Route: 048
     Dates: start: 20100217, end: 20100217
  5. MYSLEE [Concomitant]
     Indication: INSOMNIA
     Dosage: 5 MG, AS NEEDED
     Route: 048
     Dates: start: 20100218, end: 20100218
  6. OXYCODONE [Concomitant]
     Indication: ABDOMINAL PAIN UPPER
     Dosage: 5 ML, AS NEEDED
     Route: 042
     Dates: start: 20100209, end: 20100217
  7. MORPHINE HYDROCHLORIDE [Concomitant]
     Indication: ABDOMINAL PAIN UPPER
     Dosage: 50 MG, AS NEEDED
     Route: 042
     Dates: start: 20100219, end: 20100222
  8. VITAMEDIN [Concomitant]
     Dosage: 1-2V, UNKNOWN
     Route: 042
     Dates: start: 20100202, end: 20100216
  9. SOLITA-T3 INJECTION [Concomitant]
     Dosage: 1500 ML, DAILY (1/D)
     Route: 042
     Dates: start: 20100203, end: 20100210
  10. SODIUM CHLORIDE [Concomitant]
     Dosage: 40-160 ML, UNKNOWN
     Route: 042
     Dates: start: 20100208, end: 20100222
  11. SOLITA T [Concomitant]
     Dosage: 1500 ML, DAILY (1/D)
     Route: 042
     Dates: start: 20100210, end: 20100216
  12. GASTER [Concomitant]
     Indication: NAUSEA
     Dosage: 10-20 MG, UNKNOWN
     Route: 042
     Dates: start: 20100208, end: 20100222
  13. SOLITA-T1 INJECTION [Concomitant]
     Dosage: 500 ML, DAILY (1/D)
     Route: 042
     Dates: start: 20100222, end: 20100222
  14. AMINO ACIDS NOS [Concomitant]
     Dosage: 500 ML, DAILY (1/D)
     Route: 042
     Dates: start: 20100216, end: 20100222
  15. FULCALIQ [Concomitant]
     Dosage: 1003 ML, DAILY (1/D)
     Route: 042
     Dates: start: 20100217, end: 20100222
  16. SERENACE [Concomitant]
     Indication: DELIRIUM
     Dosage: 5 MG, DAILY (1/D)
     Route: 042
     Dates: start: 20100221, end: 20100222
  17. LASIX [Concomitant]
     Indication: PLEURAL EFFUSION
     Dosage: 1 A, AS NEEDED
     Route: 042
     Dates: start: 20100223, end: 20100223
  18. MIDAZOLAM HCL [Concomitant]
     Indication: DELIRIUM
     Dosage: 20 MG, DAILY (1/D)
     Route: 042
     Dates: start: 20100222, end: 20100223
  19. OXYCONTIN [Concomitant]
     Indication: ABDOMINAL PAIN UPPER
     Dosage: 10 MG, DAILY (1/D)
     Route: 048
     Dates: start: 20100122, end: 20100202
  20. KENTAN [Concomitant]
     Indication: ABDOMINAL PAIN UPPER
     Dosage: 180 MG, DAILY (1/D)
     Route: 048
     Dates: start: 20100119, end: 20100202
  21. GAMOFA [Concomitant]
     Indication: GASTRITIS PROPHYLAXIS
     Dosage: 20 MG, DAILY (1/D)
     Route: 048
     Dates: end: 20100202
  22. NOVAMIN [Concomitant]
     Indication: NAUSEA
     Dosage: 15 MG, DAILY (1/D)
     Route: 048
     Dates: start: 20100114, end: 20100202
  23. ZOFRAN ZYDIS [Concomitant]
     Indication: NAUSEA
     Dosage: 8 MG, DAILY (1/D)
     Route: 048
     Dates: start: 20100126, end: 20100202
  24. NAUZELIN [Concomitant]
     Indication: CONSTIPATION
     Dosage: 120 MG, DAILY (1/D)
     Route: 054
     Dates: start: 20100126
  25. CRAVIT [Concomitant]
     Indication: INFECTION PROPHYLAXIS
     Dosage: 500 MG, DAILY (1/D)
     Route: 048
     Dates: start: 20100126, end: 20100202

REACTIONS (4)
  - HYPERBILIRUBINAEMIA [None]
  - MALIGNANT NEOPLASM PROGRESSION [None]
  - METASTASES TO LIVER [None]
  - NAUSEA [None]
